FAERS Safety Report 6308807-0 (Version None)
Quarter: 2009Q3

REPORT INFORMATION
  Report Type: 
  Country: None (occurrence: None)
  Receive Date: 20090813
  Receipt Date: 20080827
  Transmission Date: 20100115
  Serious: No
  Sender: FDA-Public Use
  Company Number: US-ALLERGAN-0810739US

PATIENT
  Age: 82 Year
  Sex: Female

DRUGS (2)
  1. COMBIGAN [Suspect]
     Indication: GLAUCOMA
     Dates: start: 20080814
  2. LUMIGAN [Concomitant]
     Dates: start: 20060101

REACTIONS (2)
  - EYELID OEDEMA [None]
  - SWELLING FACE [None]
